FAERS Safety Report 7091500-7 (Version None)
Quarter: 2010Q4

REPORT INFORMATION
  Report Type: 
  Country: None (occurrence: None)
  Receive Date: 20101109
  Receipt Date: 20101102
  Transmission Date: 20110411
  Serious: Yes (Other)
  Sender: FDA-Public Use
  Company Number: US-PFIZER INC-2006037998

PATIENT
  Sex: Female
  Weight: 65.77 kg

DRUGS (3)
  1. LYRICA [Suspect]
     Indication: NEURALGIA
     Dosage: 75 MG, 4X/DAY
     Route: 048
     Dates: start: 20050101
  2. OXYCODONE HCL [Concomitant]
     Route: 065
  3. OXYCONTIN [Concomitant]
     Route: 065

REACTIONS (6)
  - COMPLEX REGIONAL PAIN SYNDROME [None]
  - DIABETES MELLITUS [None]
  - DRUG INEFFECTIVE [None]
  - LIMB DISCOMFORT [None]
  - OEDEMA PERIPHERAL [None]
  - VISION BLURRED [None]
